FAERS Safety Report 7454547-4 (Version None)
Quarter: 2011Q2

REPORT INFORMATION
  Report Type: 
  Country: None (occurrence: None)
  Receive Date: 20110503
  Receipt Date: 20110421
  Transmission Date: 20111010
  Serious: Yes (Other)
  Sender: FDA-Public Use
  Company Number: PHHY2011CH36492

PATIENT
  Age: 83 Year
  Sex: Female

DRUGS (4)
  1. PADMED CIRCOSAN [Concomitant]
  2. ASPIRIN [Concomitant]
     Dosage: ONE ORAL DAILY DOSAGE
     Route: 048
     Dates: start: 20100101
  3. BETAHISTINE [Concomitant]
     Dosage: 0.5 ORAL DAILY DOSAGE FORM
     Route: 048
  4. ACLASTA [Suspect]
     Dosage: 5 MG
     Route: 042
     Dates: start: 20100201

REACTIONS (6)
  - ALANINE AMINOTRANSFERASE INCREASED [None]
  - ASPARTATE AMINOTRANSFERASE INCREASED [None]
  - HEPATIC NECROSIS [None]
  - HEPATIC ENZYME INCREASED [None]
  - GAMMA-GLUTAMYLTRANSFERASE INCREASED [None]
  - HEPATITIS ACUTE [None]
